FAERS Safety Report 13359694 (Version 2)
Quarter: 2017Q2

REPORT INFORMATION
  Report Type: Spontaneous
  Country: US (occurrence: US)
  Receive Date: 20170322
  Receipt Date: 20170420
  Transmission Date: 20170830
  Serious: Yes (Other)
  Sender: FDA-Public Use
  Company Number: US-IPSEN BIOPHARMACEUTICALS, INC.-2017-01388

PATIENT
  Age: 50 Year
  Sex: Male
  Weight: 66 kg

DRUGS (4)
  1. DYSPORT [Suspect]
     Active Substance: ABOBOTULINUMTOXINA
     Indication: SKIN WRINKLING
  2. DYSPORT [Suspect]
     Active Substance: ABOBOTULINUMTOXINA
     Indication: OFF LABEL USE
  3. DYSPORT [Suspect]
     Active Substance: ABOBOTULINUMTOXINA
     Indication: SKIN WRINKLING
     Dosage: 80 UNITS
     Route: 030
     Dates: start: 20170123, end: 20170123
  4. DYSPORT [Suspect]
     Active Substance: ABOBOTULINUMTOXINA
     Indication: SKIN WRINKLING

REACTIONS (8)
  - Off label use [Unknown]
  - Injection site discolouration [Not Recovered/Not Resolved]
  - Injection site urticaria [Unknown]
  - Injection site granuloma [Recovered/Resolved with Sequelae]
  - Injection site pain [Unknown]
  - Injection site erythema [Unknown]
  - Product preparation error [Unknown]
  - Injection site nodule [Recovered/Resolved with Sequelae]

NARRATIVE: CASE EVENT DATE: 2017
